FAERS Safety Report 20851775 (Version 2)
Quarter: 2025Q3

REPORT INFORMATION
  Report Type: Spontaneous
  Country: EU (occurrence: EU)
  Receive Date: 20220520
  Receipt Date: 20250721
  Transmission Date: 20251020
  Serious: Yes (Other)
  Sender: AUROBINDO
  Company Number: EU-SUN PHARMACEUTICAL INDUSTRIES LTD-2022R1-334104

PATIENT
  Age: 63 Year
  Weight: 75 kg

DRUGS (4)
  1. FLUCLOXACILLIN [Interacting]
     Active Substance: FLUCLOXACILLIN
     Indication: Antifungal treatment
     Dosage: 2 GRAM, EVERY FOUR HOUR
     Route: 042
  2. VORICONAZOLE [Suspect]
     Active Substance: VORICONAZOLE
     Indication: Antifungal treatment
     Route: 042
  3. ISAVUCONAZOLE [Interacting]
     Active Substance: ISAVUCONAZOLE
     Indication: Product used for unknown indication
     Dosage: 200 MILLIGRAM, ONCE A DAY
     Route: 042
  4. ISAVUCONAZOLE [Interacting]
     Active Substance: ISAVUCONAZOLE
     Indication: Antifungal treatment
     Dosage: 200 MILLIGRAM, 3 TIMES A DAY
     Route: 042

REACTIONS (4)
  - Delirium [Unknown]
  - Liver function test increased [Unknown]
  - Drug level decreased [Unknown]
  - Drug interaction [Unknown]
